FAERS Safety Report 24713286 (Version 1)
Quarter: 2024Q4

REPORT INFORMATION
  Report Type: Spontaneous
  Country: US (occurrence: US)
  Receive Date: 20241209
  Receipt Date: 20241209
  Transmission Date: 20250115
  Serious: Yes (Other)
  Sender: MYLAN
  Company Number: US-MYLANLABS-2024M1108317

PATIENT
  Age: 57 Year
  Sex: Female

DRUGS (2)
  1. MIRTAZAPINE [Suspect]
     Active Substance: MIRTAZAPINE
     Indication: Anxiety
     Dosage: 45 MILLIGRAM, QD (AT NIGHT)
     Route: 065
  2. METHADONE [Concomitant]
     Active Substance: METHADONE HYDROCHLORIDE
     Indication: Drug use disorder
     Dosage: UNK
     Route: 065

REACTIONS (5)
  - Ototoxicity [Recovering/Resolving]
  - Deafness [Recovering/Resolving]
  - Tinnitus [Recovering/Resolving]
  - Hallucination, auditory [Recovering/Resolving]
  - Off label use [Unknown]
